FAERS Safety Report 10005919 (Version 24)
Quarter: 2017Q3

REPORT INFORMATION
  Report Type: Report from Study
  Country: CA (occurrence: CA)
  Receive Date: 20140313
  Receipt Date: 20170825
  Transmission Date: 20171127
  Serious: Yes (Death, Hospitalization, Other)
  Sender: FDA-Public Use
  Company Number: PHHY2014CA017890

PATIENT
  Age: 69 Year
  Sex: Male

DRUGS (3)
  1. SANDOSTATIN LAR DEPOT [Suspect]
     Active Substance: OCTREOTIDE ACETATE
     Dosage: 30 MG, QMO (EVERY 4 WEEKS)
     Route: 030
  2. SANDOSTATIN LAR DEPOT [Suspect]
     Active Substance: OCTREOTIDE ACETATE
     Dosage: 40 MG, QMO (EVERY 4 WEEKS)
     Route: 030
     Dates: start: 20160314
  3. SANDOSTATIN LAR DEPOT [Suspect]
     Active Substance: OCTREOTIDE ACETATE
     Indication: METASTATIC CARCINOID TUMOUR
     Dosage: 20 MG, QMO (EVERY 4 WEEKS)
     Route: 030
     Dates: start: 20121213

REACTIONS (28)
  - Death [Fatal]
  - Small intestinal obstruction [Unknown]
  - Blood pressure diastolic decreased [Unknown]
  - Heart valve incompetence [Unknown]
  - Dyspnoea [Not Recovered/Not Resolved]
  - Mesenteric neoplasm [Unknown]
  - Weight decreased [Unknown]
  - Abdominal discomfort [Unknown]
  - Fall [Unknown]
  - Eye swelling [Unknown]
  - Intestinal ischaemia [Unknown]
  - Abdominal pain lower [Unknown]
  - Blood pressure increased [Unknown]
  - Blood pressure systolic increased [Unknown]
  - Body temperature decreased [Unknown]
  - Oedema [Unknown]
  - Malignant neoplasm progression [Unknown]
  - Eye disorder [Unknown]
  - Thermal burn [Unknown]
  - Erythema [Unknown]
  - Dizziness postural [Not Recovered/Not Resolved]
  - Gravitational oedema [Recovering/Resolving]
  - Pleural effusion [Unknown]
  - Dehydration [Unknown]
  - Asthenia [Unknown]
  - Lacrimation increased [Unknown]
  - Pain [Unknown]
  - Peripheral swelling [Recovering/Resolving]

NARRATIVE: CASE EVENT DATE: 20140308
